FAERS Safety Report 4872438-X (Version None)
Quarter: 2005Q4

REPORT INFORMATION
  Report Type: 
  Country: None (occurrence: None)
  Receive Date: 20051201
  Receipt Date: 20050802
  Transmission Date: 20060501
  Serious: No
  Sender: FDA-Public Use
  Company Number: 2005PV000817

PATIENT
  Age: 67 Year
  Sex: Male
  Weight: 129.7287 kg

DRUGS (10)
  1. BYETTA [Suspect]
     Indication: DIABETES MELLITUS
     Dosage: 5 MCG;BID;SC
     Route: 058
     Dates: start: 20050701
  2. AVANDIA [Concomitant]
  3. GLUCOPHAGE [Concomitant]
  4. VYTORIN [Concomitant]
  5. ENALAPRIL [Concomitant]
  6. COREG [Concomitant]
  7. PLAVIX [Concomitant]
  8. HYDROCHLOROTHIAZIDE [Concomitant]
  9. LANTUS [Concomitant]
  10. HUMALOG [Concomitant]

REACTIONS (6)
  - DECREASED APPETITE [None]
  - ERUCTATION [None]
  - FEELING ABNORMAL [None]
  - FLATULENCE [None]
  - NAUSEA [None]
  - PARAESTHESIA [None]
